FAERS Safety Report 6613693-5 (Version None)
Quarter: 2010Q1

REPORT INFORMATION
  Report Type: 
  Country: None (occurrence: None)
  Receive Date: 20100226
  Receipt Date: 20100218
  Transmission Date: 20100710
  Serious: Yes (Hospitalization)
  Sender: FDA-Public Use
  Company Number: 2010SP010503

PATIENT
  Sex: Female

DRUGS (2)
  1. TEMODAR [Suspect]
     Indication: BREAST CANCER METASTATIC
  2. IRINOTECAN [Suspect]
     Indication: BREAST CANCER METASTATIC

REACTIONS (8)
  - BRADYCARDIA [None]
  - DEHYDRATION [None]
  - HEADACHE [None]
  - HYDROCEPHALUS [None]
  - LIVER FUNCTION TEST ABNORMAL [None]
  - PANCYTOPENIA [None]
  - PNEUMONIA [None]
  - SEPSIS [None]
